FAERS Safety Report 16891287 (Version 2)
Quarter: 2019Q4

REPORT INFORMATION
  Report Type: Other
  Country: CA (occurrence: CA)
  Receive Date: 20191007
  Receipt Date: 20191010
  Transmission Date: 20200122
  Serious: Yes (Death, Other)
  Sender: FDA-Public Use
  Company Number: CA-PFIZER INC-2019425145

PATIENT
  Age: 35 Year
  Sex: Female

DRUGS (1)
  1. DOXORUBICIN HCL [Suspect]
     Active Substance: DOXORUBICIN HYDROCHLORIDE
     Indication: CHORIOCARCINOMA
     Dosage: 35 MG/M2, UNK
     Route: 065

REACTIONS (2)
  - Acute myeloid leukaemia [Fatal]
  - Second primary malignancy [Fatal]
